FAERS Safety Report 7972499-5 (Version None)
Quarter: 2011Q4

REPORT INFORMATION
  Report Type: 
  Country: None (occurrence: None)
  Receive Date: 20111213
  Receipt Date: 20111129
  Transmission Date: 20120403
  Serious: Yes (Hospitalization, Other)
  Sender: FDA-Public Use
  Company Number: ES-PAR PHARMACEUTICAL, INC-2011SCPR003454

PATIENT

DRUGS (2)
  1. PROPAFENONE HCL [Suspect]
     Indication: ARRHYTHMIA
     Dosage: UNK, UNKNOWN
     Route: 065
     Dates: start: 20040101
  2. OMEPRAZOLE [Suspect]
     Indication: DYSPEPSIA
     Dosage: UNK, UNKNOWN
     Route: 065
     Dates: start: 20080101

REACTIONS (4)
  - LIVER DISORDER [None]
  - ACUTE HEPATIC FAILURE [None]
  - HEPATOCELLULAR INJURY [None]
  - AUTOIMMUNE HEPATITIS [None]
